FAERS Safety Report 8499151-4 (Version None)
Quarter: 2012Q3

REPORT INFORMATION
  Report Type: 
  Country: None (occurrence: None)
  Receive Date: 20120710
  Receipt Date: 20120628
  Transmission Date: 20120928
  Serious: Yes (Other)
  Sender: FDA-Public Use
  Company Number: JP-VERTEX PHARMACEUTICALS INC.-AE-2012-009607

PATIENT
  Age: 46 Year
  Sex: Male

DRUGS (3)
  1. RIBAVIRIN [Concomitant]
     Route: 048
     Dates: start: 20120613, end: 20120622
  2. TELAVIC (TELAPREVIR) [Suspect]
     Indication: HEPATITIS C
     Route: 048
     Dates: start: 20120613, end: 20120622
  3. PEGINTERFERON ALFA-2B [Concomitant]
     Route: 058
     Dates: start: 20120613, end: 20120620

REACTIONS (4)
  - BLOOD CREATININE INCREASED [None]
  - DELIRIUM [None]
  - DECREASED APPETITE [None]
  - RASH [None]
